FAERS Safety Report 9631605 (Version 3)
Quarter: 2013Q4

REPORT INFORMATION
  Report Type: Spontaneous
  Country: JP (occurrence: JP)
  Receive Date: 20131018
  Receipt Date: 20131204
  Transmission Date: 20140711
  Serious: Yes (Death, Hospitalization)
  Sender: FDA-Public Use
  Company Number: JP-ASTELLAS-2013US010762

PATIENT
  Age: 63 Year
  Sex: Female

DRUGS (1)
  1. TARCEVA [Suspect]
     Indication: LUNG ADENOCARCINOMA
     Dosage: 50 MG, UID/QD
     Route: 048
     Dates: start: 20111129, end: 20130611

REACTIONS (3)
  - Incorrect dose administered [Unknown]
  - Henoch-Schonlein purpura [Recovering/Resolving]
  - Malignant neoplasm progression [Fatal]
